FAERS Safety Report 12651306 (Version 1)
Quarter: 2016Q3

REPORT INFORMATION
  Report Type: Spontaneous
  Country: GB (occurrence: GB)
  Receive Date: 20160815
  Receipt Date: 20160815
  Transmission Date: 20161109
  Serious: Yes (Other)
  Sender: FDA-Public Use
  Company Number: GB-SA-2016SA145214

PATIENT
  Age: 17 Month

DRUGS (3)
  1. CEFUROXIME. [Concomitant]
     Active Substance: CEFUROXIME
  2. MYOZYME [Suspect]
     Active Substance: ALGLUCOSIDASE ALFA
     Dosage: .
     Route: 041
  3. CLARITHROMYCIN. [Concomitant]
     Active Substance: CLARITHROMYCIN

REACTIONS (3)
  - Skin discolouration [Unknown]
  - Livedo reticularis [Unknown]
  - Angiopathy [Unknown]

NARRATIVE: CASE EVENT DATE: 20160728
